FAERS Safety Report 16160821 (Version 2)
Quarter: 2019Q2

REPORT INFORMATION
  Report Type: Spontaneous
  Country: ES (occurrence: ES)
  Receive Date: 20190405
  Receipt Date: 20190419
  Transmission Date: 20190711
  Serious: Yes (Other)
  Sender: FDA-Public Use
  Company Number: ES-TEVA-2019-ES-1032567

PATIENT
  Sex: Female

DRUGS (4)
  1. ASPIRIN 500MG [Suspect]
     Active Substance: ASPIRIN
     Route: 065
  2. DICLOFENAC [Suspect]
     Active Substance: DICLOFENAC
  3. IBUPROFEN 600MG [Suspect]
     Active Substance: IBUPROFEN
     Route: 065
  4. DEXKETOPROFEN 25MG [Suspect]
     Active Substance: DEXKETOPROFEN
     Dosage: 25MG
     Route: 065

REACTIONS (3)
  - Mast cell activation syndrome [Recovered/Resolved]
  - Anaphylactic reaction [Recovered/Resolved]
  - Bronchospasm [Recovered/Resolved]
